FAERS Safety Report 16702484 (Version 7)
Quarter: 2020Q2

REPORT INFORMATION
  Report Type: Report from Study
  Country: None (occurrence: IL)
  Receive Date: 20190814
  Receipt Date: 20200517
  Transmission Date: 20200713
  Serious: Yes (Other)
  Sender: FDA-Public Use
  Company Number: IL-ABBVIE-17K-082-1984557-00

PATIENT
  Age: 68 Year
  Sex: Male

DRUGS (21)
  1. DUODOPA [Suspect]
     Active Substance: CARBIDOPA\LEVODOPA
     Dosage: CURRENT MD- 8 ML, CR- 2.9 ML/ HOUR,?CURRENT ED- 1.0 ML
     Route: 050
     Dates: start: 2019
  2. PK MERZ [Suspect]
     Active Substance: AMANTADINE SULFATE
     Indication: PRODUCT USED FOR UNKNOWN INDICATION
     Route: 065
     Dates: start: 20170509, end: 20170519
  3. DUODOPA [Suspect]
     Active Substance: CARBIDOPA\LEVODOPA
     Dosage: CURRENT:?MD 8ML, ?CD2.9ML/HOUR, ?ED1ML?NIGHT CONTINUOUS 1.2DOSE ML/HOUR
     Route: 050
     Dates: start: 201903, end: 2019
  4. DUODOPA [Suspect]
     Active Substance: CARBIDOPA\LEVODOPA
     Dosage: CR DECREASED FROM 3.2 TO 2.9 ML/HOUR.
     Route: 050
  5. DUODOPA [Suspect]
     Active Substance: CARBIDOPA\LEVODOPA
     Dosage: CURRENT MD 8, CD 3.3
     Route: 050
  6. DUODOPA [Suspect]
     Active Substance: CARBIDOPA\LEVODOPA
     Dosage: MD 8 ML, CD 3.1 ML/HOUR, ED 1 ML
     Route: 050
     Dates: end: 201903
  7. DUODOPA [Suspect]
     Active Substance: CARBIDOPA\LEVODOPA
     Dosage: CURRENT: MD 8.0ML, CD 2.7ML-DAY, ED 1.0ML, CONTINUOUS RATE 1.2ML-NIGHT.
     Route: 050
  8. SEROQUEL [Concomitant]
     Active Substance: QUETIAPINE FUMARATE
  9. DUODOPA [Suspect]
     Active Substance: CARBIDOPA\LEVODOPA
     Dosage: CURRENT MD 8 ML, CD 2.7 ML/HOUR; NIGHT 1.2 ML; ED 1 ML?DOSE DECREASED
     Route: 050
  10. DUODOPA [Suspect]
     Active Substance: CARBIDOPA\LEVODOPA
     Indication: PARKINSON^S DISEASE
     Dosage: MD:10ML,?CR:3.5ML/HOUR,? ED: 0.8ML
     Route: 050
     Dates: start: 20170328, end: 2017
  11. DUODOPA [Suspect]
     Active Substance: CARBIDOPA\LEVODOPA
     Dosage: MD 8ML, CD 3.4ML/HOUR, CND1.2ML/HOUR, CED 1ML
     Route: 050
  12. CIPRALEX [Concomitant]
     Active Substance: ESCITALOPRAM OXALATE
     Indication: DEPRESSED MOOD
  13. LYRICA [Concomitant]
     Active Substance: PREGABALIN
     Indication: PRODUCT USED FOR UNKNOWN INDICATION
     Dosage: DOSE WAS DECREASED
  14. DUODOPA [Suspect]
     Active Substance: CARBIDOPA\LEVODOPA
     Dosage: MD:9.5ML, ?CR: 4.2ML/HOUR, ?CURRENT ED:0.9ML
     Route: 050
     Dates: start: 2017, end: 2017
  15. DUODOPA [Suspect]
     Active Substance: CARBIDOPA\LEVODOPA
     Dosage: MD DECREASED TO 7.0ML, CD RATE DECREASED TO 3.0ML/HOUR, ED DECREASED TO 0.5ML.
     Route: 050
     Dates: start: 2017
  16. DUODOPA [Suspect]
     Active Substance: CARBIDOPA\LEVODOPA
     Dosage: MD 8 ML, CD 3.1ML/HOUR, ED1 ML, NIGHT CD1.2 ML/HOUR
     Route: 050
  17. DUODOPA [Suspect]
     Active Substance: CARBIDOPA\LEVODOPA
     Dosage: CM DOSE 8ML, CCD 2.9ML/HOUR DECREASED TO 2.7ML/HOUR, CED 1ML
     Route: 050
  18. SEROQUEL [Concomitant]
     Active Substance: QUETIAPINE FUMARATE
     Indication: DEPRESSED MOOD
  19. ENSURE [Concomitant]
     Active Substance: AMINO ACIDS\DEXTROSE\ELECTROLYTES NOS\SOYBEAN OIL\VITAMINS
     Indication: PRODUCT USED FOR UNKNOWN INDICATION
     Dates: start: 20180615
  20. DUODOPA [Suspect]
     Active Substance: CARBIDOPA\LEVODOPA
     Dosage: MD:9.0ML CR:3.5ML/HOUR ED : 0.5ML
     Route: 050
     Dates: start: 2017, end: 2017
  21. DUODOPA [Suspect]
     Active Substance: CARBIDOPA\LEVODOPA
     Dosage: MD 8ML, CD 3.1ML/HOUR, ND1.2ML/HOUR,?ED 0.9ML
     Route: 050

REACTIONS (50)
  - Verbal abuse [Unknown]
  - Inflammation [Not Recovered/Not Resolved]
  - Blood folate decreased [Unknown]
  - Limb discomfort [Recovering/Resolving]
  - Dystonia [Unknown]
  - Insomnia [Not Recovered/Not Resolved]
  - Hallucination [Not Recovered/Not Resolved]
  - Motor dysfunction [Unknown]
  - Malaise [Unknown]
  - Polyneuropathy [Unknown]
  - Blood homocysteine increased [Unknown]
  - Depressed mood [Unknown]
  - Balance disorder [Unknown]
  - Pain in extremity [Unknown]
  - Decreased appetite [Unknown]
  - Gait disturbance [Recovered/Resolved]
  - Tremor [Unknown]
  - Delusion [Unknown]
  - Pneumonia [Unknown]
  - Confusional state [Not Recovered/Not Resolved]
  - Parkinson^s disease [Unknown]
  - Aphasia [Unknown]
  - Nervousness [Unknown]
  - Muscle spasms [Unknown]
  - Dyspnoea exertional [Unknown]
  - Abnormal faeces [Not Recovered/Not Resolved]
  - Weight decreased [Unknown]
  - Polycythaemia [Unknown]
  - Dystonia [Recovering/Resolving]
  - Gait disturbance [Unknown]
  - Freezing phenomenon [Unknown]
  - Hallucination [Recovered/Resolved]
  - Thinking abnormal [Unknown]
  - Stoma complication [Not Recovered/Not Resolved]
  - Musculoskeletal disorder [Not Recovered/Not Resolved]
  - Device connection issue [Unknown]
  - Malaise [Recovered/Resolved]
  - Asthenia [Unknown]
  - Dyskinesia [Unknown]
  - Anxiety [Unknown]
  - Feeling abnormal [Unknown]
  - Dyspnoea [Unknown]
  - Musculoskeletal stiffness [Unknown]
  - Neuropathy peripheral [Unknown]
  - Wheezing [Unknown]
  - Gait disturbance [Recovered/Resolved]
  - On and off phenomenon [Not Recovered/Not Resolved]
  - Constipation [Unknown]
  - Dyskinesia [Recovered/Resolved]
  - Device leakage [Recovered/Resolved]

NARRATIVE: CASE EVENT DATE: 2017
